FAERS Safety Report 20059340 (Version 2)
Quarter: 2022Q1

REPORT INFORMATION
  Report Type: Spontaneous
  Country: HR (occurrence: HR)
  Receive Date: 20211111
  Receipt Date: 20220217
  Transmission Date: 20220424
  Serious: Yes (Other)
  Sender: FDA-Public Use
  Company Number: HR-SERVIER-S21012148

PATIENT

DRUGS (3)
  1. ONCASPAR [Suspect]
     Active Substance: PEGASPARGASE
     Indication: Acute lymphocytic leukaemia
     Dosage: 750 U/ML
     Route: 065
     Dates: start: 20210823, end: 20210823
  2. ONCASPAR [Suspect]
     Active Substance: PEGASPARGASE
     Dosage: 2500 U
     Route: 051
     Dates: start: 20210904, end: 20210904
  3. ONCASPAR [Suspect]
     Active Substance: PEGASPARGASE
     Dosage: 189 U
     Route: 051
     Dates: start: 20220125, end: 20220125

REACTIONS (4)
  - Hepatomegaly [Recovered/Resolved]
  - Cholecystitis [Recovered/Resolved]
  - Cholangitis [Recovered/Resolved]
  - Urticaria [Recovered/Resolved]

NARRATIVE: CASE EVENT DATE: 20210904
